FAERS Safety Report 8193426 (Version 6)
Quarter: 2016Q1

REPORT INFORMATION
  Report Type: Report from Study
  Country: PL (occurrence: PL)
  Receive Date: 20111021
  Receipt Date: 20160225
  Transmission Date: 20160526
  Serious: Yes (Death, Life-Threatening, Hospitalization)
  Sender: FDA-Public Use
  Company Number: PL-GLAXOSMITHKLINE-Z0009633A

PATIENT
  Age: 76 Year
  Sex: Male
  Weight: 104 kg

DRUGS (7)
  1. NO DRUG NAME [Concomitant]
     Indication: HYPERTENSION
     Route: 048
     Dates: start: 2006
  2. INDAPAMIDE. [Concomitant]
     Active Substance: INDAPAMIDE
     Indication: HYPERTENSION
     Dosage: 0.75 UNK, QD
     Dates: start: 2006
  3. INSPRA [Concomitant]
     Active Substance: EPLERENONE
  4. NO DRUG NAME [Concomitant]
     Indication: CORONARY ARTERY DISEASE
     Route: 048
     Dates: start: 2006
  5. PAZOPANIB [Suspect]
     Active Substance: PAZOPANIB
     Indication: RENAL CELL CARCINOMA
     Dosage: 800 MG, 1D
     Route: 048
     Dates: start: 20110504, end: 20110519
  6. NO DRUG NAME [Concomitant]
     Indication: HYPERCHOLESTEROLAEMIA
     Route: 048
     Dates: start: 2006
  7. NO DRUG NAME [Concomitant]
     Indication: DIABETES MELLITUS
     Route: 048
     Dates: start: 2007

REACTIONS (1)
  - Cardiomyopathy [Fatal]

NARRATIVE: CASE EVENT DATE: 20110519
